FAERS Safety Report 4852436-2 (Version None)
Quarter: 2005Q4

REPORT INFORMATION
  Report Type: 
  Country: None (occurrence: None)
  Receive Date: 20051130
  Receipt Date: 20050810
  Transmission Date: 20060501
  Serious: No
  Sender: FDA-Public Use
  Company Number: WAES 0506USA02617

PATIENT
  Age: 53 Year
  Sex: Male
  Weight: 93.8946 kg

DRUGS (3)
  1. ZETIA [Suspect]
     Indication: HYPERCHOLESTEROLAEMIA
     Dosage: 10 MG/DAILY/PO
     Route: 048
     Dates: start: 20040820, end: 20050302
  2. GLUCOPHAGE XR [Concomitant]
  3. LANTUS [Concomitant]

REACTIONS (1)
  - MUSCLE SPASMS [None]
